FAERS Safety Report 11739906 (Version 1)
Quarter: 2015Q4

REPORT INFORMATION
  Report Type: Spontaneous
  Country: IL (occurrence: IL)
  Receive Date: 20151113
  Receipt Date: 20151113
  Transmission Date: 20160304
  Serious: Yes (Life-Threatening)
  Sender: FDA-Public Use
  Company Number: IL-B.I. PHARMACEUTICALS,INC./RIDGEFIELD-2015-BI-62339IL

PATIENT
  Age: 37 Year
  Sex: Male

DRUGS (1)
  1. GILOTRIF [Suspect]
     Active Substance: AFATINIB
     Indication: NON-SMALL CELL LUNG CANCER
     Route: 065

REACTIONS (6)
  - Neurological examination abnormal [Unknown]
  - Aphasia [Recovered/Resolved]
  - Metastases to central nervous system [Not Recovered/Not Resolved]
  - Aphasia [Unknown]
  - Metastases to meninges [Not Recovered/Not Resolved]
  - Asthenia [Unknown]
